FAERS Safety Report 14431727 (Version 4)
Quarter: 2019Q1

REPORT INFORMATION
  Report Type: Report from Study
  Country: JP (occurrence: JP)
  Receive Date: 20180124
  Receipt Date: 20190331
  Transmission Date: 20190417
  Serious: Yes (Other)
  Sender: FDA-Public Use
  Company Number: JP-AMGEN-JPNCT2017160536

PATIENT
  Age: 73 Year
  Sex: Male
  Weight: 52 kg

DRUGS (21)
  1. DARBEPOETIN ALFA [Suspect]
     Active Substance: DARBEPOETIN ALFA
     Dosage: 240 MICROGRAM
     Route: 058
     Dates: start: 20160926, end: 20160926
  2. DARBEPOETIN ALFA [Suspect]
     Active Substance: DARBEPOETIN ALFA
     Dosage: 240 MICROGRAM
     Route: 058
     Dates: start: 20170627, end: 20170627
  3. DARBEPOETIN ALFA [Suspect]
     Active Substance: DARBEPOETIN ALFA
     Dosage: 240 MICROGRAM
     Route: 058
     Dates: start: 20161128, end: 20161128
  4. NEXIUM [Concomitant]
     Active Substance: ESOMEPRAZOLE MAGNESIUM
     Indication: GASTRIC ULCER
     Dosage: 20 MILLIGRAM
     Route: 048
     Dates: start: 20160106
  5. DARBEPOETIN ALFA [Suspect]
     Active Substance: DARBEPOETIN ALFA
     Indication: MYELODYSPLASTIC SYNDROME
     Dosage: 30 MICROGRAM, Q2WK
     Route: 058
     Dates: start: 20150713, end: 20150727
  6. DARBEPOETIN ALFA [Suspect]
     Active Substance: DARBEPOETIN ALFA
     Dosage: 240 MICROGRAM
     Route: 058
     Dates: start: 20160415, end: 20160415
  7. DARBEPOETIN ALFA [Suspect]
     Active Substance: DARBEPOETIN ALFA
     Dosage: 240 MICROGRAM
     Route: 058
     Dates: start: 20160725, end: 20160822
  8. DARBEPOETIN ALFA [Suspect]
     Active Substance: DARBEPOETIN ALFA
     Dosage: 240 MICROGRAM, Q4WK
     Route: 058
     Dates: start: 20170725
  9. FLIVAS [Concomitant]
     Active Substance: NAFTOPIDIL
     Indication: BENIGN PROSTATIC HYPERPLASIA
     Dosage: 75 MILLIGRAM
     Route: 048
  10. TIMOPTOL [Concomitant]
     Active Substance: TIMOLOL
     Indication: GLAUCOMA
     Dosage: UNK UNK, QD
     Route: 047
  11. TAPROS [Concomitant]
     Indication: GLAUCOMA
     Dosage: UNK, QD
     Route: 047
  12. TAKEPRON [Concomitant]
     Active Substance: LANSOPRAZOLE
     Indication: GASTRIC ULCER
     Dosage: 15 MILLIGRAM
     Route: 048
     Dates: start: 20151229, end: 20160105
  13. DARBEPOETIN ALFA [Suspect]
     Active Substance: DARBEPOETIN ALFA
     Dosage: 240 MICROGRAM
     Route: 058
     Dates: start: 20161024, end: 20161024
  14. DARBEPOETIN ALFA [Suspect]
     Active Substance: DARBEPOETIN ALFA
     Dosage: 240 MICROGRAM, QWK
     Route: 058
     Dates: start: 20150810, end: 20150817
  15. DARBEPOETIN ALFA [Suspect]
     Active Substance: DARBEPOETIN ALFA
     Dosage: 240 MICROGRAM, Q3WK
     Route: 058
     Dates: start: 20150907, end: 20151109
  16. DARBEPOETIN ALFA [Suspect]
     Active Substance: DARBEPOETIN ALFA
     Dosage: 240 MICROGRAM, Q2WK
     Route: 058
     Dates: start: 20160215, end: 20160328
  17. DARBEPOETIN ALFA [Suspect]
     Active Substance: DARBEPOETIN ALFA
     Dosage: 240 MICROGRAM, Q4WK
     Route: 058
     Dates: start: 20160509, end: 20160704
  18. DARBEPOETIN ALFA [Suspect]
     Active Substance: DARBEPOETIN ALFA
     Dosage: 240 MICROGRAM
     Route: 058
     Dates: start: 20161226, end: 20161226
  19. FLIVAS [Concomitant]
     Active Substance: NAFTOPIDIL
     Indication: BENIGN PROSTATIC HYPERPLASIA
  20. DARBEPOETIN ALFA [Suspect]
     Active Substance: DARBEPOETIN ALFA
     Dosage: 240 MICROGRAM, Q4WK
     Route: 058
     Dates: start: 20170130, end: 20170523
  21. FEBURIC [Concomitant]
     Active Substance: FEBUXOSTAT
     Indication: HYPERURICAEMIA
     Dosage: 10 MILLIGRAM
     Route: 048

REACTIONS (2)
  - Hyperuricaemia [Recovering/Resolving]
  - Renal impairment [Recovering/Resolving]

NARRATIVE: CASE EVENT DATE: 20150727
